FAERS Safety Report 5409777-X (Version None)
Quarter: 2007Q3

REPORT INFORMATION
  Report Type: 
  Country: None (occurrence: None)
  Receive Date: 20070807
  Receipt Date: 20070803
  Transmission Date: 20080115
  Serious: No
  Sender: FDA-Public Use
  Company Number: JPI-P-000220

PATIENT
  Age: 47 Year
  Sex: Female
  Weight: 99.7913 kg

DRUGS (7)
  1. XYREM (OXYBATE SODIUM) (500 MILIGRAM/MILLILITERS, SOLUTION) (SODIUM OX [Suspect]
     Indication: CATAPLEXY
     Dosage: 3 GM (1.5 GM, 2 IN 1 D), ORAL; 7 GM (7 GM, 1 IN 1 D), ORAL
     Route: 048
     Dates: start: 20060301
  2. XYREM (OXYBATE SODIUM) (500 MILIGRAM/MILLILITERS, SOLUTION) (SODIUM OX [Suspect]
     Indication: CATAPLEXY
     Dosage: 3 GM (1.5 GM, 2 IN 1 D), ORAL; 7 GM (7 GM, 1 IN 1 D), ORAL
     Route: 048
     Dates: start: 20060901
  3. BACLOFEN [Concomitant]
  4. HYDROCODONE/IBUPROFEN (VICOPROFEN) [Concomitant]
  5. PRAMIPEXOLE DIHYDROCHLORIDE [Concomitant]
  6. VERAPAMIL [Concomitant]
  7. METHYLPHENIDATE HCL [Concomitant]

REACTIONS (7)
  - INITIAL INSOMNIA [None]
  - MYOCLONUS [None]
  - NIGHT SWEATS [None]
  - SLEEP TALKING [None]
  - SOMNAMBULISM [None]
  - SURGERY [None]
  - UNEVALUABLE EVENT [None]
